FAERS Safety Report 11719271 (Version 1)
Quarter: 2015Q4

REPORT INFORMATION
  Report Type: Spontaneous
  Country: US (occurrence: None)
  Receive Date: 20151109
  Receipt Date: 20151109
  Transmission Date: 20160304
  Serious: Yes (Hospitalization)
  Sender: FDA-Public Use
  Company Number: None

PATIENT
  Age: 71 Year
  Sex: Male
  Weight: 83.9 kg

DRUGS (1)
  1. PROPOFOL. [Suspect]
     Active Substance: PROPOFOL
     Indication: CARDIOVASCULAR DISORDER
     Route: 042
     Dates: start: 20150903, end: 20150903

REACTIONS (4)
  - Bradycardia [None]
  - Hypoxia [None]
  - Post procedural complication [None]
  - Hypotension [None]

NARRATIVE: CASE EVENT DATE: 20150903
